FAERS Safety Report 24965508 (Version 1)
Quarter: 2025Q1

REPORT INFORMATION
  Report Type: Spontaneous
  Country: CN (occurrence: CN)
  Receive Date: 20250213
  Receipt Date: 20250213
  Transmission Date: 20250408
  Serious: Yes (Other)
  Sender: BAYER HEALTHCARE PHARMACEUTICALS INC.
  Company Number: CN-BAYER-2025A021073

PATIENT
  Age: 45 Year
  Sex: Female
  Weight: 55 kg

DRUGS (2)
  1. ULTRAVIST [Suspect]
     Active Substance: IOPROMIDE
     Indication: Computerised tomogram
     Route: 042
     Dates: start: 20250205, end: 20250205
  2. ULTRAVIST [Suspect]
     Active Substance: IOPROMIDE
     Indication: Vaginal haemorrhage

REACTIONS (6)
  - Dyspnoea [Recovering/Resolving]
  - Oxygen saturation decreased [Recovered/Resolved]
  - Hyperhidrosis [None]
  - Cold sweat [None]
  - Flushing [None]
  - Blood pressure diastolic decreased [Recovering/Resolving]

NARRATIVE: CASE EVENT DATE: 20250205
